FAERS Safety Report 6060519-7 (Version None)
Quarter: 2009Q1

REPORT INFORMATION
  Report Type: 
  Country: None (occurrence: None)
  Receive Date: 20090202
  Receipt Date: 20081231
  Transmission Date: 20090719
  Serious: No
  Sender: FDA-Public Use
  Company Number: US-BAYER-200910130NA

PATIENT
  Age: 21 Year
  Sex: Male

DRUGS (1)
  1. MAGNEVIST [Suspect]
     Indication: ANGIOGRAM
     Dates: start: 20081230, end: 20081230

REACTIONS (3)
  - CONTRAST MEDIA ALLERGY [None]
  - DIZZINESS [None]
  - VOMITING [None]
